FAERS Safety Report 9809168 (Version 5)
Quarter: 2015Q2

REPORT INFORMATION
  Report Type: Spontaneous
  Country: US (occurrence: US)
  Receive Date: 20140110
  Receipt Date: 20150624
  Transmission Date: 20150821
  Serious: Yes (Hospitalization, Other)
  Sender: FDA-Public Use
  Company Number: US-009507513-1401USA001020

PATIENT
  Sex: Female

DRUGS (4)
  1. FOSAMAX [Suspect]
     Active Substance: ALENDRONATE SODIUM
     Indication: OSTEOPENIA
     Dosage: 70 MG, WEEKLY
     Route: 048
     Dates: start: 20030509, end: 20111208
  2. FOSAMAX [Suspect]
     Active Substance: ALENDRONATE SODIUM
     Dosage: UNK
     Route: 048
     Dates: start: 2002, end: 2010
  3. FOSAMAX [Suspect]
     Active Substance: ALENDRONATE SODIUM
     Indication: OSTEOPOROSIS
     Dosage: 10 MG, QD
     Route: 048
  4. ALENDRONATE SODIUM. [Suspect]
     Active Substance: ALENDRONATE SODIUM
     Indication: OSTEOPOROSIS
     Dosage: 70 MG, WEEKLY
     Route: 048
     Dates: start: 2008, end: 201112

REACTIONS (15)
  - Anxiety [Unknown]
  - Open reduction of fracture [Recovering/Resolving]
  - Dementia [Unknown]
  - Blood 25-hydroxycholecalciferol decreased [Unknown]
  - Wrist fracture [Unknown]
  - Glaucoma [Unknown]
  - Hypothyroidism [Unknown]
  - Femur fracture [Recovering/Resolving]
  - Depression [Unknown]
  - Bipolar disorder [Unknown]
  - Supraventricular tachycardia [Unknown]
  - Fall [Unknown]
  - Fall [Unknown]
  - Hyponatraemia [Unknown]
  - Oedema peripheral [Unknown]

NARRATIVE: CASE EVENT DATE: 2005
